FAERS Safety Report 6116223-X (Version None)
Quarter: 2009Q1

REPORT INFORMATION
  Report Type: 
  Country: None (occurrence: None)
  Receive Date: 20090314
  Receipt Date: 20081203
  Transmission Date: 20090719
  Serious: Yes (Hospitalization, Other)
  Sender: FDA-Public Use
  Company Number: US-ABBOTT-08P-163-0490903-00

PATIENT
  Sex: Female
  Weight: 42.676 kg

DRUGS (2)
  1. HUMIRA [Suspect]
     Indication: CROHN'S DISEASE
     Dosage: ONE PRE-FILLED SYRINGE EVERY TWO WEEKS
     Route: 058
     Dates: start: 20071201, end: 20080301
  2. HUMIRA [Suspect]
     Dosage: ONE PEN EVERY TWO WEEKS
     Route: 058
     Dates: start: 20070801, end: 20071201

REACTIONS (1)
  - GASTROINTESTINAL INFECTION [None]
